FAERS Safety Report 17913328 (Version 1)
Quarter: 2020Q2

REPORT INFORMATION
  Report Type: Spontaneous
  Country: US (occurrence: US)
  Receive Date: 20200618
  Receipt Date: 20200618
  Transmission Date: 20200714
  Serious: No
  Sender: FDA-Public Use
  Company Number: US-THERAPEUTICSMD-2020TMD01176

PATIENT
  Age: 50 Year
  Sex: Female
  Weight: 61.22 kg

DRUGS (5)
  1. IMVEXXY [Suspect]
     Active Substance: ESTRADIOL
     Indication: UTERINE PROLAPSE
     Dosage: 10 ?G, 1X/DAY
     Route: 067
     Dates: start: 201912
  2. NASONEX [Concomitant]
     Active Substance: MOMETASONE FUROATE
     Dosage: UNK, 1X/DAY
  3. LUMIGAN [Concomitant]
     Active Substance: BIMATOPROST
     Route: 047
  4. IMVEXXY [Suspect]
     Active Substance: ESTRADIOL
     Indication: UTERINE ATROPHY
     Dosage: 10 ?G, 2X/WEEK BEFORE BED
     Route: 067
  5. CLARITIN [Concomitant]
     Active Substance: LORATADINE
     Dosage: UNK, 1X/DAY

REACTIONS (4)
  - Thrombosis [Recovered/Resolved]
  - Therapeutic product effect decreased [Not Recovered/Not Resolved]
  - Dry mouth [Not Recovered/Not Resolved]
  - Polymenorrhoea [Recovered/Resolved]

NARRATIVE: CASE EVENT DATE: 202002
